FAERS Safety Report 4551075-0 (Version None)
Quarter: 2005Q1

REPORT INFORMATION
  Report Type: 
  Country: None (occurrence: None)
  Receive Date: 20050113
  Receipt Date: 20040319
  Transmission Date: 20050727
  Serious: Yes (Other)
  Sender: FDA-Public Use
  Company Number: US-BRISTOL-MYERS SQUIBB COMPANY-12540357

PATIENT

DRUGS (1)
  1. IFEX [Suspect]

REACTIONS (1)
  - NEUROTOXICITY [None]
